FAERS Safety Report 12475714 (Version 2)
Quarter: 2016Q3

REPORT INFORMATION
  Report Type: Spontaneous
  Country: JP (occurrence: JP)
  Receive Date: 20160617
  Receipt Date: 20160706
  Transmission Date: 20161109
  Serious: Yes (Other)
  Sender: FDA-Public Use
  Company Number: JP-SA-2016SA112575

PATIENT
  Age: 68 Year
  Sex: Male

DRUGS (3)
  1. AMARYL [Suspect]
     Active Substance: GLIMEPIRIDE
     Dosage: (DOSE: MORNING :2MG, EVENING:1 MG)
     Route: 048
  2. AMARYL [Suspect]
     Active Substance: GLIMEPIRIDE
     Route: 048
  3. JANUVIA [Concomitant]
     Active Substance: SITAGLIPTIN PHOSPHATE
     Route: 048

REACTIONS (2)
  - Interstitial lung disease [Unknown]
  - Hyperglycaemia [Unknown]
